FAERS Safety Report 4537041-X (Version None)
Quarter: 2004Q4

REPORT INFORMATION
  Report Type: 
  Country: None (occurrence: None)
  Receive Date: 20041223
  Receipt Date: 20040908
  Transmission Date: 20050328
  Serious: Yes (Hospitalization)
  Sender: FDA-Public Use
  Company Number: US-BRISTOL-MYERS SQUIBB COMPANY-12695490

PATIENT
  Sex: Male

DRUGS (2)
  1. ATAZANAVIR [Suspect]
  2. RITONAVIR [Suspect]

REACTIONS (1)
  - HEPATIC ENZYME INCREASED [None]
